FAERS Safety Report 12784202 (Version 1)
Quarter: 2016Q3

REPORT INFORMATION
  Report Type: Report from Study
  Country: US (occurrence: US)
  Receive Date: 20160927
  Receipt Date: 20160927
  Transmission Date: 20161109
  Serious: Yes (Other)
  Sender: FDA-Public Use
  Company Number: US-GILEAD-2016-0235164

PATIENT
  Age: 56 Year
  Sex: Female

DRUGS (10)
  1. METHYLPRED [Concomitant]
     Active Substance: METHYLPREDNISOLONE
  2. ADCIRCA [Suspect]
     Active Substance: TADALAFIL
     Indication: PULMONARY HYPERTENSION
     Route: 065
     Dates: start: 20130612
  3. ABILIFY [Concomitant]
     Active Substance: ARIPIPRAZOLE
  4. GABAPENTIN. [Concomitant]
     Active Substance: GABAPENTIN
  5. LEXAPRO [Concomitant]
     Active Substance: ESCITALOPRAM OXALATE
  6. AMBRISENTAN [Suspect]
     Active Substance: AMBRISENTAN
     Indication: PULMONARY HYPERTENSION
     Dosage: 10 MG, QD
     Route: 065
     Dates: start: 20150909
  7. CIMETIDINE [Concomitant]
     Active Substance: CIMETIDINE
  8. OXYGEN. [Concomitant]
     Active Substance: OXYGEN
  9. AZATHIOPRINE. [Concomitant]
     Active Substance: AZATHIOPRINE
  10. DIGOXIN. [Concomitant]
     Active Substance: DIGOXIN

REACTIONS (2)
  - Condition aggravated [Not Recovered/Not Resolved]
  - Sarcoidosis [Not Recovered/Not Resolved]
